FAERS Safety Report 5845278-2 (Version None)
Quarter: 2008Q3

REPORT INFORMATION
  Report Type: 
  Country: None (occurrence: None)
  Receive Date: 20080731
  Receipt Date: 20080616
  Transmission Date: 20090109
  Serious: No
  Sender: FDA-Public Use
  Company Number: US200804006188

PATIENT
  Age: 72 Year
  Sex: Female
  Weight: 147.4 kg

DRUGS (12)
  1. BYETTA [Suspect]
     Indication: TYPE 2 DIABETES MELLITUS
     Dosage: 5 UG, SUBCUTANEOUS; 10 UG, SUBCUTANEOUS
     Route: 058
     Dates: start: 20070101, end: 20070101
  2. BYETTA [Suspect]
     Indication: TYPE 2 DIABETES MELLITUS
     Dosage: 5 UG, SUBCUTANEOUS; 10 UG, SUBCUTANEOUS
     Route: 058
     Dates: start: 20070101
  3. EXENATIDE 5MCG PEN, DISPOSABLE DEVICE (EXENATIDE PEN (5MCG)) PEN,DISPO [Concomitant]
  4. EXENATIDE 10MCG PEN, DISPOSABLE DEVICE (EXENATIDE PEN (10MCG)) PEN,DIS [Concomitant]
  5. ACTOS [Concomitant]
  6. GLIMEPIRIDE [Concomitant]
  7. COZAAR [Concomitant]
  8. COREG [Concomitant]
  9. WARFARIN SODIUM [Concomitant]
  10. KLOR-CON [Concomitant]
  11. LIPITOR [Concomitant]
  12. TORSEMIDE [Concomitant]

REACTIONS (9)
  - ASTHENIA [None]
  - CELLULITIS [None]
  - FATIGUE [None]
  - FEELING COLD [None]
  - MOBILITY DECREASED [None]
  - POOR QUALITY SLEEP [None]
  - VISUAL IMPAIRMENT [None]
  - WEIGHT INCREASED [None]
  - WOUND INFECTION STAPHYLOCOCCAL [None]
